FAERS Safety Report 6284695-6 (Version None)
Quarter: 2009Q3

REPORT INFORMATION
  Report Type: 
  Country: None (occurrence: None)
  Receive Date: 20090727
  Receipt Date: 20090511
  Transmission Date: 20100115
  Serious: No
  Sender: FDA-Public Use
  Company Number: US-BAYER-200920562NA

PATIENT
  Age: 17 Year
  Sex: Female

DRUGS (1)
  1. YAZ [Suspect]
     Indication: CONTRACEPTION
     Dosage: TOTAL DAILY DOSE: 1 DF
     Route: 048

REACTIONS (1)
  - MEDICATION ERROR [None]
